FAERS Safety Report 5281625-0 (Version None)
Quarter: 2007Q1

REPORT INFORMATION
  Report Type: 
  Country: None (occurrence: None)
  Receive Date: 20070330
  Receipt Date: 20070328
  Transmission Date: 20070707
  Serious: Yes (Death)
  Sender: FDA-Public Use
  Company Number: PHHO2006DK20351

PATIENT
  Age: 73 Year
  Sex: Male
  Weight: 57 kg

DRUGS (1)
  1. ZOMETA [Suspect]
     Indication: METASTASES TO BONE
     Dosage: 4 MG, UNK
     Route: 042
     Dates: start: 20060403

REACTIONS (2)
  - ANAEMIA [None]
  - MALIGNANT NEOPLASM PROGRESSION [None]
